FAERS Safety Report 8187512-2 (Version None)
Quarter: 2012Q1

REPORT INFORMATION
  Report Type: 
  Country: None (occurrence: None)
  Receive Date: 20120302
  Receipt Date: 20120220
  Transmission Date: 20120608
  Serious: Yes (Death, Hospitalization)
  Sender: FDA-Public Use
  Company Number: 2012MA002281

PATIENT
  Age: 60 Year
  Sex: Male

DRUGS (7)
  1. VALPROATE SODIUM [Concomitant]
  2. MELOXICAM [Concomitant]
  3. MIDAZOLAM [Concomitant]
  4. MORPHINE SULFATE INJ [Suspect]
     Indication: PAIN
     Dosage: 7000 MG;QD;IV
     Route: 042
  5. KETAMINE HCL [Concomitant]
  6. LIDOCAINE [Concomitant]
  7. PREDNISOLONE [Concomitant]

REACTIONS (6)
  - SOMNOLENCE [None]
  - DELIRIUM [None]
  - HYPOAESTHESIA [None]
  - CONFUSIONAL STATE [None]
  - RESPIRATORY DEPRESSION [None]
  - COGNITIVE DISORDER [None]
